FAERS Safety Report 18494483 (Version 9)
Quarter: 2023Q1

REPORT INFORMATION
  Report Type: Report from Study
  Country: US (occurrence: US)
  Receive Date: 20201112
  Receipt Date: 20230203
  Transmission Date: 20230417
  Serious: No
  Sender: FDA-Public Use
  Company Number: NVSC2020US295783

PATIENT
  Sex: Female
  Weight: 52 kg

DRUGS (3)
  1. ILARIS [Suspect]
     Active Substance: CANAKINUMAB
     Indication: Still^s disease
     Dosage: 232 MG, Q4W
     Route: 058
     Dates: start: 20200827
  2. ILARIS [Suspect]
     Active Substance: CANAKINUMAB
     Dosage: 208.8 MG, Q4W
     Route: 058
     Dates: start: 20200925
  3. ILARIS [Suspect]
     Active Substance: CANAKINUMAB
     Dosage: 300 MG, Q4W
     Route: 058

REACTIONS (4)
  - Head discomfort [Unknown]
  - Malaise [Unknown]
  - Product dose omission issue [Unknown]
  - Therapeutic product effect incomplete [Unknown]
